FAERS Safety Report 7989243-8 (Version None)
Quarter: 2011Q4

REPORT INFORMATION
  Report Type: 
  Country: None (occurrence: None)
  Receive Date: 20111216
  Receipt Date: 20111216
  Transmission Date: 20120403
  Serious: Yes (Life-Threatening)
  Sender: FDA-Public Use
  Company Number: None

PATIENT
  Age: 32 Year
  Sex: Female
  Weight: 68.9467 kg

DRUGS (2)
  1. MIRTAZAPINE [Suspect]
     Dosage: 2MG @HS ORAL
     Route: 048
     Dates: start: 20111121
  2. RISPERIDONE [Suspect]
     Dosage: 30MG @HS ORAL
     Route: 048
     Dates: start: 20111121

REACTIONS (6)
  - RESPIRATORY DISORDER [None]
  - TRISMUS [None]
  - DYSPHAGIA [None]
  - PO2 DECREASED [None]
  - DYSTONIA [None]
  - BLOOD PRESSURE INCREASED [None]
